FAERS Safety Report 9427107 (Version 1)
Quarter: 2013Q3

REPORT INFORMATION
  Report Type: Report from Study
  Country: US (occurrence: US)
  Receive Date: 20130730
  Receipt Date: 20130730
  Transmission Date: 20140515
  Serious: No
  Sender: FDA-Public Use
  Company Number: US-ABBOTT-12P-163-0994149-00

PATIENT
  Sex: Female
  Weight: 108.51 kg

DRUGS (4)
  1. NIASPAN (COATED) [Suspect]
     Indication: BLOOD TRIGLYCERIDES INCREASED
  2. NIASPAN (COATED) [Suspect]
     Dates: start: 20121001
  3. PRISTIQUE [Concomitant]
     Indication: PRODUCT USED FOR UNKNOWN INDICATION
  4. ASA [Concomitant]
     Dosage: ? MG EVERYDAY
     Route: 048

REACTIONS (4)
  - Flushing [Recovered/Resolved]
  - Blood triglycerides increased [Unknown]
  - Erythema [Unknown]
  - Feeling hot [Unknown]
